FAERS Safety Report 13720913 (Version 1)
Quarter: 2017Q3

REPORT INFORMATION
  Report Type: Spontaneous
  Country: US (occurrence: US)
  Receive Date: 20170705
  Receipt Date: 20170705
  Transmission Date: 20171127
  Serious: Yes (Hospitalization)
  Sender: FDA-Public Use
  Company Number: None

PATIENT
  Age: 31 Year
  Sex: Female

DRUGS (2)
  1. AMLODIPINE [Concomitant]
     Active Substance: AMLODIPINE BESYLATE
  2. METHYLDOPA. [Suspect]
     Active Substance: METHYLDOPA
     Indication: HYPERTENSION
     Dates: start: 201412, end: 20150117

REACTIONS (8)
  - Pruritus [None]
  - Blood alkaline phosphatase increased [None]
  - Drug-induced liver injury [None]
  - Alanine aminotransferase increased [None]
  - Blood bilirubin increased [None]
  - Antimitochondrial antibody positive [None]
  - Aspartate aminotransferase increased [None]
  - Treatment noncompliance [None]

NARRATIVE: CASE EVENT DATE: 20150119
